FAERS Safety Report 23630421 (Version 1)
Quarter: 2024Q1

REPORT INFORMATION
  Report Type: Spontaneous
  Country: US (occurrence: US)
  Receive Date: 20240314
  Receipt Date: 20240314
  Transmission Date: 20240410
  Serious: Yes (Other)
  Sender: FDA-Public Use
  Company Number: US-HIKMA PHARMACEUTICALS USA INC.-US-H14001-24-01919

PATIENT
  Age: 35 Year

DRUGS (2)
  1. DOXORUBICIN [Suspect]
     Active Substance: DOXORUBICIN
     Indication: Product used for unknown indication
     Dosage: UNK
     Route: 065
  2. PREDNISONE [Suspect]
     Active Substance: PREDNISONE
     Indication: Product used for unknown indication
     Dosage: 60 MILLIGRAM
     Route: 065

REACTIONS (12)
  - Oedema [Unknown]
  - Fluid retention [Unknown]
  - Generalised oedema [Unknown]
  - Discomfort [Unknown]
  - Pain [Unknown]
  - Hypertension [Unknown]
  - Gait disturbance [Unknown]
  - Disease progression [Unknown]
  - Weight increased [Unknown]
  - Dyspnoea [Unknown]
  - Cardiac disorder [Unknown]
  - Scrotal swelling [Unknown]
